FAERS Safety Report 7705034-7 (Version None)
Quarter: 2011Q3

REPORT INFORMATION
  Report Type: 
  Country: None (occurrence: None)
  Receive Date: 20110823
  Receipt Date: 20110818
  Transmission Date: 20111222
  Serious: Yes (Death)
  Sender: FDA-Public Use
  Company Number: GB-PFIZER INC-2011190740

PATIENT
  Age: 61 Year
  Sex: Male

DRUGS (12)
  1. CYCLIZINE [Concomitant]
     Dosage: 150 MG, UNK
     Dates: start: 20110723, end: 20110816
  2. GEMTUZUMAB OZOGAMICIN [Suspect]
     Indication: ACUTE MYELOID LEUKAEMIA
     Dosage: UNK
     Dates: start: 20110720, end: 20110729
  3. CYTARABINE [Suspect]
     Indication: ACUTE MYELOID LEUKAEMIA
     Dosage: UNK
     Dates: start: 20110720, end: 20110729
  4. ETOPOSIDE [Suspect]
     Indication: MYELODYSPLASTIC SYNDROME
  5. DAUNORUBICIN HCL [Suspect]
     Indication: ACUTE MYELOID LEUKAEMIA
     Dosage: UNK
     Dates: start: 20110720, end: 20110729
  6. TRANEXAMIC ACID [Concomitant]
     Dosage: 1 G, UNK
     Dates: start: 20110721, end: 20110816
  7. CLOTRIMAZOLE [Concomitant]
     Dosage: 1 DF, UNK
     Dates: start: 20110730, end: 20110816
  8. PARACETAMOL [Concomitant]
     Dosage: 1 G, UNK
     Dates: start: 20110717, end: 20110816
  9. CYTARABINE [Suspect]
     Indication: MYELODYSPLASTIC SYNDROME
  10. DAUNORUBICIN HCL [Suspect]
     Indication: MYELODYSPLASTIC SYNDROME
  11. GEMTUZUMAB OZOGAMICIN [Suspect]
     Indication: MYELODYSPLASTIC SYNDROME
  12. ETOPOSIDE [Suspect]
     Indication: ACUTE MYELOID LEUKAEMIA
     Dosage: UNK
     Dates: start: 20110720, end: 20110729

REACTIONS (1)
  - NEUTROPENIC SEPSIS [None]
